FAERS Safety Report 24292506 (Version 1)
Quarter: 2024Q3

REPORT INFORMATION
  Report Type: Spontaneous
  Country: US (occurrence: None)
  Receive Date: 20240906
  Receipt Date: 20240906
  Transmission Date: 20241016
  Serious: Yes (Hospitalization)
  Sender: Public
  Company Number: None

PATIENT
  Sex: Male

DRUGS (3)
  1. OPSUMIT [Suspect]
     Active Substance: MACITENTAN
     Indication: Pulmonary arterial hypertension
     Dosage: FREQUENCY : DAILY;?
     Route: 048
     Dates: start: 202203
  2. UPTRAVI (MNTH 1 TITR) [Concomitant]
  3. UPTRAVI (MNTH 2 TITR) [Concomitant]

REACTIONS (11)
  - Headache [None]
  - Abdominal discomfort [None]
  - Muscle spasms [None]
  - Loss of personal independence in daily activities [None]
  - Mood altered [None]
  - Oxygen saturation decreased [None]
  - Fatigue [None]
  - Peripheral swelling [None]
  - Weight abnormal [None]
  - Chest pain [None]
  - Fluid retention [None]
